FAERS Safety Report 4764545-7 (Version None)
Quarter: 2005Q3

REPORT INFORMATION
  Report Type: 
  Country: None (occurrence: None)
  Receive Date: 20050909
  Receipt Date: 20050706
  Transmission Date: 20060218
  Serious: Yes (Other)
  Sender: FDA-Public Use
  Company Number: GB-BRISTOL-MYERS SQUIBB COMPANY-13094586

PATIENT
  Age: 30 Year
  Sex: Male

DRUGS (1)
  1. AMPHOTERICIN B [Suspect]

REACTIONS (1)
  - NEPHROGENIC DIABETES INSIPIDUS [None]
